FAERS Safety Report 13942951 (Version 1)
Quarter: 2017Q3

REPORT INFORMATION
  Report Type: Other
  Country: GB (occurrence: IN)
  Receive Date: 20170906
  Receipt Date: 20170906
  Transmission Date: 20171128
  Serious: Yes (Hospitalization, Other)
  Sender: FDA-Public Use
  Company Number: IN-CLARIS PHARMASERVICES-2025597

PATIENT
  Age: 56 Year
  Sex: Female

DRUGS (6)
  1. ASPIRIN AND CLOPIDOGREL COMBINATION [Concomitant]
     Route: 048
     Dates: start: 20161116
  2. TICAGRELOR. [Concomitant]
     Active Substance: TICAGRELOR
     Dates: start: 20161116, end: 20161228
  3. METOPROLOL. [Suspect]
     Active Substance: METOPROLOL
     Indication: ACUTE MYOCARDIAL INFARCTION
     Dates: start: 20161116, end: 20161207
  4. METOPROLOL. [Suspect]
     Active Substance: METOPROLOL
     Dates: start: 20161207
  5. ATORVASTATIN [Concomitant]
     Active Substance: ATORVASTATIN
     Dates: start: 20161116
  6. MULTIVITAMIN [Concomitant]
     Active Substance: VITAMINS

REACTIONS (2)
  - Encephalopathy [Recovering/Resolving]
  - Drug-induced liver injury [Recovering/Resolving]

NARRATIVE: CASE EVENT DATE: 20170116
